FAERS Safety Report 9388751 (Version 2)
Quarter: 2013Q4

REPORT INFORMATION
  Report Type: Spontaneous
  Country: FR (occurrence: FR)
  Receive Date: 20130708
  Receipt Date: 20131007
  Transmission Date: 20140711
  Serious: Yes (Hospitalization)
  Sender: FDA-Public Use
  Company Number: FR-GLAXOSMITHKLINE-B0903009A

PATIENT
  Age: 88 Year
  Sex: Male

DRUGS (12)
  1. ARIXTRA [Suspect]
     Indication: PULMONARY EMBOLISM
     Dosage: 7.5MG PER DAY
     Route: 058
     Dates: start: 20130426, end: 20130523
  2. APROVEL [Concomitant]
     Indication: HYPERTENSION
     Dosage: 300MG PER DAY
     Route: 048
     Dates: start: 2010
  3. ZOCOR [Concomitant]
     Indication: DYSLIPIDAEMIA
     Dosage: 5MG PER DAY
     Route: 048
     Dates: start: 1995
  4. LANTUS [Concomitant]
     Indication: TYPE 2 DIABETES MELLITUS
     Dosage: 26IU PER DAY
     Route: 058
  5. NOVORAPID [Concomitant]
     Indication: TYPE 2 DIABETES MELLITUS
     Dosage: 32IU PER DAY
     Route: 058
  6. LEVOTHYROX [Concomitant]
     Indication: HYPOTHYROIDISM
     Dosage: 75MCG ALTERNATE DAYS
     Route: 048
  7. CELECTOL [Concomitant]
     Dosage: 200MG PER DAY
     Route: 048
     Dates: start: 1995
  8. LASILIX [Concomitant]
     Indication: HYPERTENSION
     Dosage: 40MG TWICE PER DAY
     Route: 048
     Dates: start: 1995
  9. EUPRESSYL [Concomitant]
     Indication: HYPERTENSION
     Dosage: 60MG TWICE PER DAY
     Route: 048
     Dates: start: 1995
  10. EUPRESSYL [Concomitant]
     Indication: HYPERTENSION
     Dosage: 30MG PER DAY
     Route: 048
  11. KARDEGIC [Concomitant]
     Dosage: 75MG PER DAY
     Route: 048
     Dates: start: 1995
  12. LERCAN [Concomitant]
     Dosage: 20MG PER DAY
     Route: 048
     Dates: start: 1995

REACTIONS (5)
  - Blood blister [Recovered/Resolved]
  - Skin haemorrhage [Recovered/Resolved]
  - Injection site haematoma [Recovering/Resolving]
  - Haematoma [Recovered/Resolved]
  - Skin necrosis [Recovered/Resolved]
